FAERS Safety Report 8475320-4 (Version None)
Quarter: 2012Q2

REPORT INFORMATION
  Report Type: 
  Country: None (occurrence: None)
  Receive Date: 20120628
  Receipt Date: 20110711
  Transmission Date: 20120825
  Serious: Yes (Other)
  Sender: FDA-Public Use
  Company Number: US-ROCHE-1077911

PATIENT
  Sex: Male
  Weight: 94.069 kg

DRUGS (7)
  1. LEFLUNOMIDE [Suspect]
     Indication: RHEUMATOID ARTHRITIS
  2. ETANERCEPT [Suspect]
     Indication: RHEUMATOID ARTHRITIS
     Route: 058
     Dates: start: 20100402, end: 20100908
  3. ABATACEPT [Concomitant]
     Route: 065
  4. BEVACIZUMAB [Suspect]
     Indication: PRODUCT USED FOR UNKNOWN INDICATION
  5. PEGFILGRASTIM [Suspect]
     Indication: PRODUCT USED FOR UNKNOWN INDICATION
  6. METHOTREXATE [Suspect]
     Indication: RHEUMATOID ARTHRITIS
     Route: 048
  7. CELEBREX [Concomitant]

REACTIONS (4)
  - VISION BLURRED [None]
  - HERPES SIMPLEX [None]
  - CORNEAL SCAR [None]
  - BLINDNESS UNILATERAL [None]
